FAERS Safety Report 13175336 (Version 1)
Quarter: 2017Q1

REPORT INFORMATION
  Report Type: Spontaneous
  Country: US (occurrence: US)
  Receive Date: 20170131
  Receipt Date: 20170131
  Transmission Date: 20170428
  Serious: No
  Sender: FDA-Public Use
  Company Number: None

PATIENT
  Age: 57 Year
  Sex: Female
  Weight: 52.62 kg

DRUGS (1)
  1. TAMOXIFICN CITRATE MAYNE [Suspect]
     Active Substance: TAMOXIFEN CITRATE
     Indication: BREAST CANCER
     Route: 048
     Dates: start: 20140601

REACTIONS (1)
  - Product size issue [None]

NARRATIVE: CASE EVENT DATE: 20170127
